FAERS Safety Report 9298715 (Version 1)
Quarter: 2013Q2

REPORT INFORMATION
  Report Type: Spontaneous
  Country: US (occurrence: US)
  Receive Date: 20130520
  Receipt Date: 20130520
  Transmission Date: 20140414
  Serious: Yes (Death, Hospitalization)
  Sender: FDA-Public Use
  Company Number: US-GLAXOSMITHKLINE-A0788080A

PATIENT
  Age: 75 Year
  Sex: Male
  Weight: 95.5 kg

DRUGS (1)
  1. AVANDIA [Suspect]
     Indication: TYPE 2 DIABETES MELLITUS
     Dosage: 8MG PER DAY
     Route: 048
     Dates: start: 20010123, end: 200706

REACTIONS (5)
  - Death [Fatal]
  - Myocardial infarction [Unknown]
  - Renal failure [Unknown]
  - Aneurysm [Unknown]
  - Transient ischaemic attack [Unknown]
